FAERS Safety Report 17335667 (Version 1)
Quarter: 2020Q1

REPORT INFORMATION
  Report Type: Spontaneous
  Country: US (occurrence: US)
  Receive Date: 20200128
  Receipt Date: 20200128
  Transmission Date: 20200409
  Serious: Yes (Hospitalization, Other)
  Sender: FDA-Public Use
  Company Number: US-NOVOPROD-706833

PATIENT
  Age: 46 Year
  Sex: Female
  Weight: 146.06 kg

DRUGS (10)
  1. ACTIVELLA [Suspect]
     Active Substance: ESTRADIOL\NORETHINDRONE ACETATE
     Indication: UTERINE LEIOMYOMA
     Dosage: DAILY
     Route: 048
     Dates: start: 20170126, end: 20170323
  2. HYDROCHLOROTHIAZIDE. [Concomitant]
     Active Substance: HYDROCHLOROTHIAZIDE
     Indication: HYPERTENSION
     Dosage: 25 MG, QD
     Route: 048
     Dates: start: 201509, end: 20170711
  3. IRON [Concomitant]
     Active Substance: IRON
     Indication: ANAEMIA
     Dosage: 325 MG, TID
     Route: 048
     Dates: start: 20161028
  4. EPIPEN [Concomitant]
     Active Substance: EPINEPHRINE
     Indication: RUBBER SENSITIVITY
  5. COLACE [Concomitant]
     Active Substance: DOCUSATE SODIUM
     Indication: CONSTIPATION PROPHYLAXIS
     Route: 048
  6. PRILOSEC [Concomitant]
     Active Substance: OMEPRAZOLE MAGNESIUM
     Indication: DYSPEPSIA
     Dosage: 40 MG, PRN
     Route: 048
     Dates: start: 20170501
  7. EPIPEN [Concomitant]
     Active Substance: EPINEPHRINE
     Indication: HYPERSENSITIVITY
     Dosage: 0.3 MG PRN AS REQUIRED FOR HYPERSENSITIVITY AND RUBBER SENSITIVITY
     Route: 030
     Dates: start: 1985
  8. TYLENOL [Concomitant]
     Active Substance: ACETAMINOPHEN
     Indication: HEADACHE
     Dosage: 500 MG, PRN
     Route: 048
     Dates: start: 20170224
  9. ZYRTEC [Concomitant]
     Active Substance: CETIRIZINE HYDROCHLORIDE
     Indication: HYPERSENSITIVITY
     Dosage: 10 MG, PRN
     Route: 048
     Dates: start: 2005
  10. ELAGOLIX [Suspect]
     Active Substance: ELAGOLIX
     Indication: UTERINE LEIOMYOMA
     Dosage: 300 MG
     Route: 065
     Dates: start: 20170126, end: 20170323

REACTIONS (4)
  - Gallbladder enlargement [Recovered/Resolved]
  - Off label use [Recovered/Resolved]
  - Obesity [Recovered/Resolved]
  - Hepatic steatosis [Unknown]

NARRATIVE: CASE EVENT DATE: 20170126
